FAERS Safety Report 9292400 (Version 1)
Quarter: 2013Q1

REPORT INFORMATION
  Report Type: Spontaneous
  Country: US (occurrence: None)
  Receive Date: 20121212
  Receipt Date: 20121212
  Transmission Date: 20140127
  Serious: No
  Sender: FDA-Public Use
  Company Number: 1210USA008301

PATIENT
  Sex: Female

DRUGS (3)
  1. PEGINTRON [Suspect]
     Indication: HEPATITIS C
     Dates: start: 20111116, end: 20120525
  2. RIBAVIRIN [Suspect]
     Indication: HEPATITIS C
     Dates: start: 20111118, end: 20120525
  3. VICTRELIS [Suspect]
     Indication: HEPATITIS C
     Dates: start: 20111223, end: 20120525

REACTIONS (1)
  - Weight decreased [None]
